FAERS Safety Report 21434088 (Version 5)
Quarter: 2022Q4

REPORT INFORMATION
  Report Type: Spontaneous
  Country: KR (occurrence: KR)
  Receive Date: 20221010
  Receipt Date: 20221201
  Transmission Date: 20230113
  Serious: Yes (Other)
  Sender: FDA-Public Use
  Company Number: KR-KYOWAKIRIN-2022AKK015530

PATIENT
  Age: 79 Year
  Sex: Male

DRUGS (36)
  1. DARBEPOETIN ALFA [Suspect]
     Active Substance: DARBEPOETIN ALFA
     Indication: Product used for unknown indication
     Dosage: 40 MICROGRAM, QWK
     Route: 042
     Dates: start: 20210511, end: 20210511
  2. DARBEPOETIN ALFA [Suspect]
     Active Substance: DARBEPOETIN ALFA
     Dosage: 60 MICROGRAM, QWK
     Route: 042
     Dates: start: 20210517, end: 20210607
  3. DARBEPOETIN ALFA [Suspect]
     Active Substance: DARBEPOETIN ALFA
     Dosage: 100 MICROGRAM, QWK
     Route: 042
     Dates: start: 20210614, end: 20210906
  4. DARBEPOETIN ALFA [Suspect]
     Active Substance: DARBEPOETIN ALFA
     Dosage: 120 MICROGRAM, QWK
     Route: 042
     Dates: start: 20210913, end: 20211025
  5. DARBEPOETIN ALFA [Suspect]
     Active Substance: DARBEPOETIN ALFA
     Dosage: 150 MICROGRAM, QWK
     Route: 042
     Dates: start: 20211101, end: 20211206
  6. DARBEPOETIN ALFA [Suspect]
     Active Substance: DARBEPOETIN ALFA
     Dosage: 180 MICROGRAM, QWK
     Route: 042
     Dates: start: 20211213, end: 20211213
  7. EPOETIN ALFA [Suspect]
     Active Substance: ERYTHROPOIETIN
     Indication: Product used for unknown indication
     Dosage: 50 MICROGRAM
     Route: 058
     Dates: start: 20190102, end: 20190102
  8. EPOETIN ALFA [Suspect]
     Active Substance: ERYTHROPOIETIN
     Dosage: 50 MICROGRAM
     Route: 058
     Dates: start: 20190213, end: 20190213
  9. EPOETIN ALFA [Suspect]
     Active Substance: ERYTHROPOIETIN
     Dosage: 100 MICROGRAM
     Route: 058
     Dates: start: 20190417, end: 20190417
  10. EPOETIN ALFA [Suspect]
     Active Substance: ERYTHROPOIETIN
     Dosage: 100 MICROGRAM
     Route: 058
     Dates: start: 20190307, end: 20190307
  11. EPOETIN ALFA [Suspect]
     Active Substance: ERYTHROPOIETIN
     Dosage: 50 MICROGRAM
     Route: 058
     Dates: start: 20190814, end: 20190814
  12. EPOETIN ALFA [Suspect]
     Active Substance: ERYTHROPOIETIN
     Dosage: 50 MICROGRAM
     Route: 058
     Dates: start: 20191002, end: 20191002
  13. EPOETIN ALFA [Suspect]
     Active Substance: ERYTHROPOIETIN
     Dosage: 150 MICROGRAM
     Route: 058
     Dates: start: 20191120, end: 20191120
  14. EPOETIN ALFA [Suspect]
     Active Substance: ERYTHROPOIETIN
     Dosage: 150 MICROGRAM
     Route: 058
     Dates: start: 20200123, end: 20200123
  15. EPOETIN ALFA [Suspect]
     Active Substance: ERYTHROPOIETIN
     Dosage: 150 MICROGRAM
     Route: 058
     Dates: start: 20200519, end: 20200519
  16. EPOETIN ALFA [Suspect]
     Active Substance: ERYTHROPOIETIN
     Dosage: 150 MICROGRAM
     Route: 058
     Dates: start: 20200616, end: 20200616
  17. EPOETIN ALFA [Suspect]
     Active Substance: ERYTHROPOIETIN
     Dosage: 150 MICROGRAM
     Route: 058
     Dates: start: 20200715, end: 20200715
  18. EPOETIN ALFA [Suspect]
     Active Substance: ERYTHROPOIETIN
     Dosage: 150 MICROGRAM
     Route: 058
     Dates: start: 20201111, end: 20201111
  19. EPOETIN ALFA [Suspect]
     Active Substance: ERYTHROPOIETIN
     Dosage: 150 MICROGRAM
     Route: 058
     Dates: start: 20201223, end: 20201223
  20. EPOETIN ALFA [Suspect]
     Active Substance: ERYTHROPOIETIN
     Dosage: 150 MICROGRAM
     Route: 058
     Dates: start: 20210113, end: 20210113
  21. EPOETIN ALFA [Suspect]
     Active Substance: ERYTHROPOIETIN
     Dosage: 150 MICROGRAM
     Route: 058
     Dates: start: 20210317, end: 20210317
  22. EPOETIN ALFA [Suspect]
     Active Substance: ERYTHROPOIETIN
     Dosage: 150 MICROGRAM
     Route: 058
     Dates: start: 20210414, end: 20210414
  23. TOUJEO [Concomitant]
     Active Substance: INSULIN GLARGINE
     Indication: Product used for unknown indication
     Dosage: 18-24U
  24. ZEMIGLO [Concomitant]
     Indication: Product used for unknown indication
     Dosage: UNK
     Route: 048
  25. GLUCONON [Concomitant]
     Indication: Product used for unknown indication
     Dosage: UNK
     Route: 048
  26. GLICLAZIDE [Concomitant]
     Active Substance: GLICLAZIDE
     Indication: Product used for unknown indication
     Dosage: UNK
     Route: 048
  27. CALCIUM CARBONATE [Concomitant]
     Active Substance: CALCIUM CARBONATE
     Indication: Product used for unknown indication
     Dosage: UNK
  28. CHOLECALCIFEROL [Concomitant]
     Active Substance: CHOLECALCIFEROL
     Indication: Product used for unknown indication
     Dosage: UNK
  29. ASPIRIN [Concomitant]
     Active Substance: ASPIRIN
     Indication: Product used for unknown indication
     Dosage: UNK
  30. EZETIMIBE [Concomitant]
     Active Substance: EZETIMIBE
     Indication: Product used for unknown indication
     Dosage: UNK
  31. ATORVASTATIN CALCIUM [Concomitant]
     Active Substance: ATORVASTATIN CALCIUM
     Indication: Product used for unknown indication
     Dosage: UNK
  32. OLDECA [Concomitant]
     Indication: Product used for unknown indication
     Dosage: UNK
  33. RENALMIN [Concomitant]
     Indication: Product used for unknown indication
     Dosage: UNK
  34. FEDULOW [Concomitant]
     Indication: Product used for unknown indication
     Dosage: 1 DOSAGE FORM
  35. PFIZER-BIONTECH COVID-19 VACCINE [Concomitant]
     Active Substance: TOZINAMERAN
     Indication: Product used for unknown indication
     Dosage: UNK
     Dates: start: 20210901, end: 20210901
  36. PFIZER-BIONTECH COVID-19 VACCINE [Concomitant]
     Active Substance: TOZINAMERAN
     Dosage: UNK
     Dates: start: 20211005, end: 20211005

REACTIONS (6)
  - Aplasia pure red cell [Unknown]
  - Red blood cell transfusion [Unknown]
  - Serum ferritin increased [Unknown]
  - Reticulocyte count decreased [Unknown]
  - Pyrexia [Unknown]
  - Drug ineffective [Unknown]

NARRATIVE: CASE EVENT DATE: 20210920
